FAERS Safety Report 6015780-1 (Version None)
Quarter: 2008Q4

REPORT INFORMATION
  Report Type: 
  Country: None (occurrence: None)
  Receive Date: 20081219
  Receipt Date: 20081219
  Transmission Date: 20090506
  Serious: No
  Sender: FDA-Public Use
  Company Number: None

PATIENT
  Age: 60 Year
  Sex: Female
  Weight: 72.5755 kg

DRUGS (1)
  1. ACTIVAN [Suspect]

REACTIONS (5)
  - ASTHENIA [None]
  - DRUG INTERACTION [None]
  - DYSARTHRIA [None]
  - MEMORY IMPAIRMENT [None]
  - SLEEP DISORDER [None]
